FAERS Safety Report 6383489-0 (Version None)
Quarter: 2009Q4

REPORT INFORMATION
  Report Type: 
  Country: None (occurrence: None)
  Receive Date: 20091001
  Receipt Date: 20090924
  Transmission Date: 20100525
  Serious: Yes (Death, Hospitalization)
  Sender: FDA-Public Use
  Company Number: US-ELI_LILLY_AND_COMPANY-US200907005565

PATIENT
  Sex: Female
  Weight: 72.5 kg

DRUGS (10)
  1. BYETTA [Suspect]
     Indication: TYPE 2 DIABETES MELLITUS
     Dosage: 5 UG, 2/D
     Route: 058
     Dates: start: 20060101
  2. BYETTA [Suspect]
     Dosage: 10 UG, 2/D
     Route: 058
  3. BYETTA [Suspect]
     Dosage: 5 UG, DAILY (1/D)
     Route: 058
     Dates: end: 20090601
  4. ACTOS [Concomitant]
     Dosage: 30 MG, DAILY (1/D)
  5. JANUVIA [Concomitant]
     Dosage: 50 MG, 2/D
  6. GLUCOPHAGE [Concomitant]
     Dosage: 500 MG, 2/D
  7. CRESTOR [Concomitant]
  8. ASPIRIN [Concomitant]
  9. ENALAPRIL MALEATE [Concomitant]
  10. LOVENOX [Concomitant]

REACTIONS (5)
  - DEATH [None]
  - DIABETES MELLITUS INADEQUATE CONTROL [None]
  - PANCREATITIS NECROTISING [None]
  - PNEUMOPERITONEUM [None]
  - WEIGHT DECREASED [None]
